FAERS Safety Report 4649022-6 (Version None)
Quarter: 2005Q2

REPORT INFORMATION
  Report Type: 
  Country: None (occurrence: None)
  Receive Date: 20050429
  Receipt Date: 20050414
  Transmission Date: 20051028
  Serious: Yes (Hospitalization)
  Sender: FDA-Public Use
  Company Number: BE-ROCHE-401950

PATIENT
  Age: 40 Year
  Sex: Female
  Weight: 57.1 kg

DRUGS (2)
  1. XELODA [Suspect]
     Dosage: DOSING REGIMEN: 3W.
     Route: 048
     Dates: start: 20040615, end: 20050215
  2. HERCEPTIN [Concomitant]
     Route: 042
     Dates: start: 20030315

REACTIONS (3)
  - CONFUSIONAL STATE [None]
  - CONVULSION [None]
  - DELIRIUM [None]
